FAERS Safety Report 7261065-5 (Version None)
Quarter: 2011Q1

REPORT INFORMATION
  Report Type: 
  Country: None (occurrence: None)
  Receive Date: 20110130
  Receipt Date: 20101228
  Transmission Date: 20110831
  Serious: No
  Sender: FDA-Public Use
  Company Number: US-ABBOTT-10P-163-0694058-00

PATIENT
  Age: 24 Year
  Sex: Female

DRUGS (4)
  1. WELLBUTRIN [Concomitant]
     Indication: PRODUCT USED FOR UNKNOWN INDICATION
  2. CELEXA [Concomitant]
     Indication: ANXIETY
  3. HUMIRA [Suspect]
     Indication: PSORIASIS
     Dates: start: 20101202
  4. CELEXA [Concomitant]
     Indication: DEPRESSION

REACTIONS (3)
  - INJECTION SITE PAIN [None]
  - PAIN [None]
  - INJECTION SITE HAEMATOMA [None]
